FAERS Safety Report 21920431 (Version 2)
Quarter: 2023Q1

REPORT INFORMATION
  Report Type: Spontaneous
  Country: JP (occurrence: JP)
  Receive Date: 20230127
  Receipt Date: 20230206
  Transmission Date: 20230417
  Serious: Yes (Death, Hospitalization, Other)
  Sender: FDA-Public Use
  Company Number: JP-BRISTOL-MYERS SQUIBB COMPANY-2023-010779

PATIENT
  Age: 86 Year
  Sex: Female

DRUGS (1)
  1. REVLIMID [Suspect]
     Active Substance: LENALIDOMIDE
     Indication: Follicular lymphoma
     Dosage: NUMBER OF DAYS OF ADMINISTRATION:5 DAYS
     Route: 048
     Dates: start: 20221221, end: 20221225

REACTIONS (3)
  - COVID-19 [Recovered/Resolved]
  - Primary amyloidosis [Fatal]
  - Renal impairment [Recovered/Resolved]
